FAERS Safety Report 22191757 (Version 1)
Quarter: 2023Q2

REPORT INFORMATION
  Report Type: Spontaneous
  Country: US (occurrence: None)
  Receive Date: 20230407
  Receipt Date: 20230407
  Transmission Date: 20230722
  Serious: Yes (Hospitalization)
  Sender: FDA-Public Use
  Company Number: None

PATIENT
  Age: 34 Year
  Sex: Male
  Weight: 67 kg

DRUGS (1)
  1. SMARTMOUTH MOUTHWASH CLINICAL DDS FORMULA [Suspect]
     Active Substance: CETYLPYRIDINIUM CHLORIDE
     Indication: Breath odour
     Dates: start: 20230329, end: 20230331

REACTIONS (3)
  - Parotitis [None]
  - Jaw disorder [None]
  - Therapy cessation [None]

NARRATIVE: CASE EVENT DATE: 20230331
